FAERS Safety Report 16744464 (Version 1)
Quarter: 2019Q3

REPORT INFORMATION
  Report Type: Spontaneous
  Country: US (occurrence: US)
  Receive Date: 20190827
  Receipt Date: 20190827
  Transmission Date: 20191005
  Serious: Yes (Death, Life-Threatening, Hospitalization, Other)
  Sender: FDA-Public Use
  Company Number: US-SHILPA MEDICARE LIMITED-SML-US-2019-00179

PATIENT
  Age: 77 Year
  Sex: Male

DRUGS (1)
  1. AZACITIDINE, UNKNOWN [Suspect]
     Active Substance: AZACITIDINE
     Indication: MYELODYSPLASTIC SYNDROME
     Route: 058

REACTIONS (12)
  - Anaemia [Unknown]
  - Pyrexia [Unknown]
  - Chills [Unknown]
  - Haemolysis [Unknown]
  - Death [Fatal]
  - Clostridial sepsis [Fatal]
  - Confusional state [Unknown]
  - Dyspnoea [Unknown]
  - Neutropenia [Fatal]
  - Liver abscess [Fatal]
  - Cardiac arrest [Fatal]
  - Multiple organ dysfunction syndrome [Fatal]
